FAERS Safety Report 15982710 (Version 1)
Quarter: 2019Q1

REPORT INFORMATION
  Report Type: Spontaneous
  Country: US (occurrence: US)
  Receive Date: 20190219
  Receipt Date: 20190219
  Transmission Date: 20190418
  Serious: Yes (Hospitalization, Other)
  Sender: FDA-Public Use
  Company Number: US-009507513-1902USA006690

PATIENT
  Sex: Female

DRUGS (1)
  1. KEYTRUDA [Suspect]
     Active Substance: PEMBROLIZUMAB
     Indication: LUNG NEOPLASM MALIGNANT
     Dosage: UNK
     Route: 042
     Dates: end: 201901

REACTIONS (3)
  - Malignant neoplasm progression [Unknown]
  - Immune thrombocytopenic purpura [Unknown]
  - Anaemia [Unknown]

NARRATIVE: CASE EVENT DATE: 201811
